FAERS Safety Report 24039055 (Version 2)
Quarter: 2024Q3

REPORT INFORMATION
  Report Type: Report from Study
  Country: GB (occurrence: GB)
  Receive Date: 20240702
  Receipt Date: 20240812
  Transmission Date: 20241016
  Serious: Yes (Hospitalization, Other)
  Sender: AMGEN
  Company Number: GB-AMGEN-GBRSL2024110590

PATIENT
  Sex: Female

DRUGS (2)
  1. ADALIMUMAB [Suspect]
     Active Substance: ADALIMUMAB
     Indication: Rheumatoid arthritis
     Dosage: 40 MILLIGRAM, Q2WK
     Route: 065
  2. TOCILIZUMAB [Concomitant]
     Active Substance: TOCILIZUMAB
     Indication: Product used for unknown indication
     Dosage: UNK
     Route: 065
     Dates: start: 202211

REACTIONS (19)
  - Chronic lymphocytic leukaemia [Unknown]
  - Lower respiratory tract infection [Unknown]
  - Pneumonia [Unknown]
  - Localised infection [Unknown]
  - Myocardial infarction [Unknown]
  - Neutropenic sepsis [Unknown]
  - Kidney infection [Unknown]
  - Pulmonary fibrosis [Unknown]
  - Rheumatoid arthritis [Unknown]
  - Infection [Unknown]
  - Decreased immune responsiveness [Unknown]
  - Aphonia [Unknown]
  - Malaise [Unknown]
  - Lethargy [Unknown]
  - Somnolence [Unknown]
  - Quality of life decreased [Unknown]
  - Ischaemic skin ulcer [Unknown]
  - Dry skin [Unknown]
  - Skin oedema [Unknown]
